FAERS Safety Report 10867302 (Version 2)
Quarter: 2015Q1

REPORT INFORMATION
  Report Type: Spontaneous
  Country: SG (occurrence: SG)
  Receive Date: 20150225
  Receipt Date: 20150320
  Transmission Date: 20150721
  Serious: Yes (Death, Hospitalization, Other)
  Sender: FDA-Public Use
  Company Number: SG-BAYER-2014-185451

PATIENT
  Age: 71 Year
  Sex: Male

DRUGS (3)
  1. ADEMPAS [Suspect]
     Active Substance: RIOCIGUAT
     Indication: IDIOPATHIC PULMONARY FIBROSIS
     Dosage: 0.5 MG, TID
     Route: 048
  2. ADEMPAS [Suspect]
     Active Substance: RIOCIGUAT
     Indication: IDIOPATHIC PULMONARY FIBROSIS
     Dosage: 1 MG, TID
     Route: 048
  3. VENTAVIS [Suspect]
     Active Substance: ILOPROST
     Indication: IDIOPATHIC PULMONARY FIBROSIS
     Dosage: 5 ?G, 5ID
     Dates: start: 20150213

REACTIONS (6)
  - Syncope [None]
  - Lethargy [None]
  - Product use issue [None]
  - Death [Fatal]
  - Intentional product misuse [None]
  - Dizziness [None]

NARRATIVE: CASE EVENT DATE: 20150316
